FAERS Safety Report 4385377-8 (Version None)
Quarter: 2004Q2

REPORT INFORMATION
  Report Type: 
  Country: None (occurrence: None)
  Receive Date: 20040622
  Receipt Date: 20040616
  Transmission Date: 20050107
  Serious: Yes (Death)
  Sender: FDA-Public Use
  Company Number: US-JNJFOC-20040604243

PATIENT
  Age: 62 Year
  Sex: Female

DRUGS (1)
  1. SPORANOX [Suspect]
     Dosage: 150 MG, 1 IN 1 12 HOUR, ORAL
     Route: 048
     Dates: start: 20030801

REACTIONS (1)
  - DEATH [None]
